FAERS Safety Report 18229090 (Version 1)
Quarter: 2020Q3

REPORT INFORMATION
  Report Type: Spontaneous
  Country: US (occurrence: US)
  Receive Date: 20200903
  Receipt Date: 20200903
  Transmission Date: 20201103
  Serious: Yes (Other)
  Sender: FDA-Public Use
  Company Number: NVSC2020US241727

PATIENT
  Age: 60 Year
  Sex: Female

DRUGS (3)
  1. LENVATINIB [Suspect]
     Active Substance: LENVATINIB
     Indication: CHOLANGIOCARCINOMA
     Dosage: UNK (FOURTH LINE REGIMEN)
     Route: 065
  2. PALBOCICLIB [Suspect]
     Active Substance: PALBOCICLIB
     Indication: CHOLANGIOCARCINOMA
     Dosage: UNK (FOURTH LINE REGIMEN)
     Route: 065
  3. EVEROLIMUS. [Suspect]
     Active Substance: EVEROLIMUS
     Indication: CHOLANGIOCARCINOMA
     Dosage: UNK (FOURTH LINE REGIMEN)
     Route: 065

REACTIONS (3)
  - Product use in unapproved indication [Unknown]
  - Cholangiocarcinoma [Unknown]
  - Malignant neoplasm progression [Unknown]
